FAERS Safety Report 9522189 (Version 1)
Quarter: 2013Q1

REPORT INFORMATION
  Report Type: Spontaneous
  Country: US (occurrence: None)
  Receive Date: 20130305
  Receipt Date: 20130305
  Transmission Date: 20140127
  Serious: Yes (Other)
  Sender: FDA-Public Use
  Company Number: 163-21880-12072973

PATIENT
  Sex: Male
  Weight: 108.86 kg

DRUGS (8)
  1. REVLIMID [Suspect]
     Indication: PLASMA CELL MYELOMA
     Route: 048
     Dates: start: 20080401, end: 2009
  2. ASPIRIN (ACETYLSALICYLIC ACID) [Concomitant]
  3. BACTRIM [Concomitant]
  4. BICLLIN (GONOCILLIN) [Concomitant]
  5. DEXAMETHASONE [Concomitant]
  6. GABAPENTIN [Concomitant]
  7. OMEPRAZOLE [Concomitant]
  8. TRAMADOL [Concomitant]

REACTIONS (2)
  - Fatigue [None]
  - Asthenia [None]
